FAERS Safety Report 4444692-X (Version None)
Quarter: 2004Q3

REPORT INFORMATION
  Report Type: 
  Country: None (occurrence: None)
  Receive Date: 20040907
  Receipt Date: 20040824
  Transmission Date: 20050211
  Serious: Yes (Life-Threatening)
  Sender: FDA-Public Use
  Company Number: B0343550A

PATIENT
  Age: 74 Year
  Sex: Male

DRUGS (8)
  1. COMMIT [Suspect]
     Indication: EX-SMOKER
     Dosage: 4 MG/ TRANSBUCCAL
     Route: 002
  2. VERAPAMIL HYDROCHLORIDE [Suspect]
  3. TIOTROPIUM [Concomitant]
  4. FORMOTEROL [Concomitant]
  5. IPATROPIUM BROMIDE [Concomitant]
  6. THEOPHYLLINE [Concomitant]
  7. ENALAPRIL [Concomitant]
  8. ALFUZOSIN HYDROCHLORIDE [Concomitant]

REACTIONS (2)
  - DELIRIUM [None]
  - TACHYCARDIA [None]
